FAERS Safety Report 8154153-2 (Version None)
Quarter: 2012Q1

REPORT INFORMATION
  Report Type: 
  Country: None (occurrence: None)
  Receive Date: 20120221
  Receipt Date: 20120214
  Transmission Date: 20120608
  Serious: Yes (Death)
  Sender: FDA-Public Use
  Company Number: CA-ROXANE LABORATORIES, INC.-2012-RO-00658RO

PATIENT
  Age: 4 Year
  Sex: Male

DRUGS (1)
  1. CODEINE SULFATE [Suspect]
     Indication: PAIN

REACTIONS (2)
  - RESPIRATORY DEPRESSION [None]
  - TOXICITY TO VARIOUS AGENTS [None]
